FAERS Safety Report 9900724 (Version 2)
Quarter: 2014Q2

REPORT INFORMATION
  Report Type: Report from Study
  Country: US (occurrence: US)
  Receive Date: 20140217
  Receipt Date: 20140604
  Transmission Date: 20141212
  Serious: No
  Sender: FDA-Public Use
  Company Number: US-ROCHE-1344156

PATIENT
  Sex: 0

DRUGS (10)
  1. BEVACIZUMAB [Suspect]
     Indication: COLON CANCER
     Route: 042
  2. BEVACIZUMAB [Suspect]
     Indication: COLORECTAL CANCER METASTATIC
  3. LEUCOVORIN [Suspect]
     Indication: COLON CANCER
     Route: 042
  4. LEUCOVORIN [Suspect]
     Indication: COLORECTAL CANCER METASTATIC
  5. IRINOTECAN [Suspect]
     Indication: COLON CANCER
     Route: 042
  6. IRINOTECAN [Suspect]
     Indication: COLORECTAL CANCER METASTATIC
  7. OXALIPLATIN [Suspect]
     Indication: COLON CANCER
     Route: 042
  8. OXALIPLATIN [Suspect]
     Indication: COLORECTAL CANCER METASTATIC
  9. 5-FU [Suspect]
     Indication: COLON CANCER
     Route: 042
  10. 5-FU [Suspect]
     Indication: COLORECTAL CANCER METASTATIC

REACTIONS (2)
  - Anal fissure [Not Recovered/Not Resolved]
  - Anal ulcer [Not Recovered/Not Resolved]
